FAERS Safety Report 8409755-2 (Version None)
Quarter: 2012Q2

REPORT INFORMATION
  Report Type: 
  Country: None (occurrence: None)
  Receive Date: 20120529
  Receipt Date: 20120515
  Transmission Date: 20120825
  Serious: Yes (Other)
  Sender: FDA-Public Use
  Company Number: DSA_57480_2012

PATIENT
  Age: 68 Year
  Sex: Female

DRUGS (25)
  1. LEVOTHYROXINE SODIUM [Concomitant]
  2. OXYGEN [Concomitant]
  3. PAXIL [Suspect]
     Indication: PRODUCT USED FOR UNKNOWN INDICATION
     Dosage: DF
  4. LISINOPRIL [Concomitant]
  5. TRIAMTERENE AND HYDROCHLOROTHIAZIDE [Concomitant]
  6. SENNOSIDE A+B [Concomitant]
  7. MULTI-VITAMINS [Concomitant]
  8. PROPOFOL [Concomitant]
  9. SUXAMETHONIUM [Concomitant]
  10. WELLBUTRIN [Suspect]
     Indication: PRODUCT USED FOR UNKNOWN INDICATION
     Dosage: DF
  11. HEPARIN-FRACTION, CALCIUM SALT [Concomitant]
  12. DULOXETIME HYDROCHLORIDE [Suspect]
     Indication: PRODUCT USED FOR UNKNOWN INDICATION
     Dosage: DF
  13. FLUDROCORTISONE ACETATE [Concomitant]
  14. ALENDRONATE SODIUM [Concomitant]
  15. HYDROMORPHONE [Concomitant]
  16. FENTANYL [Suspect]
     Indication: PRODUCT USED FOR UNKNOWN INDICATION
     Dosage: 100;50 UG ONCE
  17. GABAPENTIN [Concomitant]
  18. CLONAZEPAM [Concomitant]
  19. OMEPRAZOLE [Concomitant]
  20. ATORVASTATIN CALCIUM [Concomitant]
  21. MIDAZOLAM [Concomitant]
  22. DESFLUTRANE [Concomitant]
  23. ONDANSETRON HCL [Suspect]
     Indication: PRODUCT USED FOR UNKNOWN INDICATION
     Dosage: 4 MG, ONCE
  24. OXYCODONE HCL [Concomitant]
  25. TIAGABINE HYDROCHLORIDE [Concomitant]

REACTIONS (4)
  - SEROTONIN SYNDROME [None]
  - UNRESPONSIVE TO STIMULI [None]
  - BLOOD PRESSURE DECREASED [None]
  - OXYGEN SATURATION DECREASED [None]
